FAERS Safety Report 16705667 (Version 1)
Quarter: 2019Q3

REPORT INFORMATION
  Report Type: Spontaneous
  Country: NL (occurrence: FR)
  Receive Date: 20190815
  Receipt Date: 20190815
  Transmission Date: 20191004
  Serious: Yes (Hospitalization)
  Sender: FDA-Public Use
  Company Number: FR-FRESENIUS KABI-FK201908751

PATIENT
  Age: 23 Year
  Sex: Female
  Weight: 78 kg

DRUGS (6)
  1. HALOPERIDOL DECANOATE. [Concomitant]
     Active Substance: HALOPERIDOL DECANOATE
     Indication: AGITATION
     Route: 048
     Dates: start: 201906, end: 20190712
  2. LEVOFLOXACIN KABI 5 MG / ML [Suspect]
     Active Substance: LEVOFLOXACIN
     Indication: ENCEPHALITIS
     Route: 041
     Dates: start: 20190620, end: 20190715
  3. PARACETAMOL [Concomitant]
     Active Substance: ACETAMINOPHEN
     Indication: PAIN
     Route: 041
     Dates: start: 20190617, end: 20190714
  4. IVERMECTIN. [Concomitant]
     Active Substance: IVERMECTIN
     Indication: PARASITIC INFECTION PROPHYLAXIS
     Route: 048
     Dates: start: 20190711, end: 20190711
  5. METHYLPREDNISOLONE ACEPONATE [Suspect]
     Active Substance: METHYLPREDNISOLONE ACEPONATE
     Indication: SYSTEMIC LUPUS ERYTHEMATOSUS
     Route: 041
     Dates: start: 20190706, end: 20190708
  6. CEFOTAXIME [Concomitant]
     Active Substance: CEFOTAXIME SODIUM
     Indication: ENCEPHALITIS
     Route: 041
     Dates: start: 20190617, end: 20190715

REACTIONS (2)
  - Blood alkaline phosphatase increased [Recovered/Resolved with Sequelae]
  - Hepatocellular injury [Recovering/Resolving]

NARRATIVE: CASE EVENT DATE: 20190711
